FAERS Safety Report 7321891-0 (Version None)
Quarter: 2011Q1

REPORT INFORMATION
  Report Type: 
  Country: None (occurrence: None)
  Receive Date: 20110228
  Receipt Date: 20110223
  Transmission Date: 20110831
  Serious: Yes (Hospitalization, Other)
  Sender: FDA-Public Use
  Company Number: US-PFIZER INC-2011039863

PATIENT
  Sex: Female
  Weight: 48.073 kg

DRUGS (3)
  1. ALBUTEROL [Concomitant]
     Indication: ASTHMA
     Dosage: UNK
  2. CHANTIX [Suspect]
     Dosage: 0.5 MG, 2X/DAY
     Dates: start: 20101101, end: 20110101
  3. CHANTIX [Suspect]
     Indication: SMOKING CESSATION THERAPY
     Dosage: 0.5 MG, 1X/DAY
     Route: 048
     Dates: start: 20101101

REACTIONS (11)
  - AGITATION [None]
  - HEPATIC ENZYME INCREASED [None]
  - PANIC ATTACK [None]
  - MOOD SWINGS [None]
  - NAUSEA [None]
  - ANTIBIOTIC RESISTANT STAPHYLOCOCCUS TEST POSITIVE [None]
  - ABNORMAL DREAMS [None]
  - INDIFFERENCE [None]
  - INSOMNIA [None]
  - ANXIETY [None]
  - POST-TRAUMATIC STRESS DISORDER [None]
